FAERS Safety Report 22367425 (Version 1)
Quarter: 2023Q2

REPORT INFORMATION
  Report Type: Spontaneous
  Country: US (occurrence: US)
  Receive Date: 20230525
  Receipt Date: 20230525
  Transmission Date: 20230721
  Serious: No
  Sender: FDA-Public Use
  Company Number: US-THEA-2022002219

PATIENT
  Age: 77 Year
  Sex: Female

DRUGS (1)
  1. BETIMOL [Suspect]
     Active Substance: TIMOLOL
     Indication: Product used for unknown indication
     Dosage: BOTH EYES
     Route: 047
     Dates: start: 202210

REACTIONS (2)
  - Eye swelling [Recovering/Resolving]
  - Eye pruritus [Recovering/Resolving]

NARRATIVE: CASE EVENT DATE: 20221001
